FAERS Safety Report 22098456 (Version 1)
Quarter: 2023Q1

REPORT INFORMATION
  Report Type: Spontaneous
  Country: US (occurrence: None)
  Receive Date: 20230314
  Receipt Date: 20230314
  Transmission Date: 20230418
  Serious: No
  Sender: FDA-Public Use
  Company Number: None

PATIENT
  Age: 2 Year
  Sex: Female
  Weight: 12.6 kg

DRUGS (5)
  1. MONTELUKAST SODIUM [Suspect]
     Active Substance: MONTELUKAST SODIUM
     Indication: Cough
     Dosage: ORAL
     Route: 048
     Dates: start: 20230216, end: 20230311
  2. MONTELUKAST SODIUM [Suspect]
     Active Substance: MONTELUKAST SODIUM
     Indication: Asthma
  3. levabuterol [Concomitant]
  4. BUDESONIDE [Concomitant]
     Active Substance: BUDESONIDE
  5. childrens multivitamin [Concomitant]

REACTIONS (6)
  - Insomnia [None]
  - Crying [None]
  - Aggression [None]
  - Abnormal dreams [None]
  - Excessive eye blinking [None]
  - Muscle twitching [None]

NARRATIVE: CASE EVENT DATE: 20230308
